FAERS Safety Report 17613823 (Version 3)
Quarter: 2020Q2

REPORT INFORMATION
  Report Type: Report from Study
  Country: NL (occurrence: NL)
  Receive Date: 20200401
  Receipt Date: 20200618
  Transmission Date: 20200713
  Serious: Yes (Hospitalization, Other)
  Sender: FDA-Public Use
  Company Number: NL-BRISTOL-MYERS SQUIBB COMPANY-BMS-2020-023887

PATIENT
  Age: 64 Year
  Sex: Female

DRUGS (1)
  1. NIVOLUMAB [Suspect]
     Active Substance: NIVOLUMAB
     Indication: RENAL CANCER
     Dosage: 318 MILLIGRAM, Q4WK; 1.00 PER 4 WEEKS
     Route: 041
     Dates: start: 201903

REACTIONS (4)
  - Malignant neoplasm progression [Not Recovered/Not Resolved]
  - Thrombosis [Recovering/Resolving]
  - Pneumonia [Recovered/Resolved]
  - Prescribed underdose [Unknown]

NARRATIVE: CASE EVENT DATE: 20200306
